FAERS Safety Report 21812292 (Version 1)
Quarter: 2022Q4

REPORT INFORMATION
  Report Type: Spontaneous
  Country: US (occurrence: None)
  Receive Date: 20221230
  Receipt Date: 20221230
  Transmission Date: 20230112
  Serious: No
  Sender: FDA-Public Use
  Company Number: None

PATIENT
  Age: 66 Year
  Sex: Female
  Weight: 51.75 kg

DRUGS (5)
  1. YUVAFEM [Suspect]
     Active Substance: ESTRADIOL HEMIHYDRATE
     Indication: Atrophic vulvovaginitis
     Dosage: FREQUENCY : AT BEDTIME;?
     Route: 067
     Dates: start: 20220726, end: 20220830
  2. ZOLPIDEM TARTRATE [Concomitant]
     Active Substance: ZOLPIDEM TARTRATE
  3. Centrum multivitamin [Concomitant]
  4. DIETARY SUPPLEMENT [Concomitant]
     Active Substance: DIETARY SUPPLEMENT
  5. VALERIAN [Concomitant]
     Active Substance: VALERIAN

REACTIONS (6)
  - Manufacturing issue [None]
  - Product quality issue [None]
  - Vulvovaginal pain [None]
  - Vulvovaginal burning sensation [None]
  - Vulvovaginal pruritus [None]
  - Pollakiuria [None]

NARRATIVE: CASE EVENT DATE: 20220726
